FAERS Safety Report 5190737-1 (Version None)
Quarter: 2006Q4

REPORT INFORMATION
  Report Type: 
  Country: None (occurrence: None)
  Receive Date: 20061215
  Receipt Date: 20061130
  Transmission Date: 20070319
  Serious: Yes (Hospitalization)
  Sender: FDA-Public Use
  Company Number: 06-001436

PATIENT
  Age: 6 Year
  Sex: Female
  Weight: 20 kg

DRUGS (2)
  1. DURICEF [Suspect]
  2. ACETAMINOPHEN [Concomitant]

REACTIONS (4)
  - ARTHRALGIA [None]
  - ORAL SOFT TISSUE DISORDER [None]
  - PYREXIA [None]
  - RASH MACULO-PAPULAR [None]
